FAERS Safety Report 7154211-5 (Version None)
Quarter: 2010Q4

REPORT INFORMATION
  Report Type: 
  Country: None (occurrence: None)
  Receive Date: 20101213
  Receipt Date: 20101130
  Transmission Date: 20110411
  Serious: Yes (Hospitalization)
  Sender: FDA-Public Use
  Company Number: PHHY2010US82085

PATIENT
  Sex: Female
  Weight: 19 kg

DRUGS (3)
  1. EXJADE [Suspect]
     Dosage: 375 MG, QD
     Route: 048
  2. IMURAN [Concomitant]
  3. TACROLIMUS [Concomitant]

REACTIONS (6)
  - DIARRHOEA [None]
  - GASTRIC HAEMORRHAGE [None]
  - GASTROINTESTINAL DISORDER [None]
  - HAEMATOCHEZIA [None]
  - RENAL FAILURE [None]
  - SERUM FERRITIN INCREASED [None]
